FAERS Safety Report 11231599 (Version 8)
Quarter: 2016Q3

REPORT INFORMATION
  Report Type: Report from Study
  Country: DE (occurrence: DE)
  Receive Date: 20150701
  Receipt Date: 20160809
  Transmission Date: 20161109
  Serious: Yes (Hospitalization)
  Sender: FDA-Public Use
  Company Number: DE-TAKEDA-2015MPI004359

PATIENT
  Age: 77 Year
  Sex: Male
  Weight: 84 kg

DRUGS (7)
  1. LEVACT [Suspect]
     Active Substance: BENDAMUSTINE HYDROCHLORIDE
     Indication: PLASMA CELL MYELOMA
     Dosage: 170 MG, UNK
     Route: 042
     Dates: start: 20150427, end: 20150609
  2. HYDROMORPHONE [Concomitant]
     Active Substance: HYDROMORPHONE
     Indication: PAIN
     Dosage: 8 MG, BID
     Route: 048
     Dates: start: 20150618
  3. LYRICA [Concomitant]
     Active Substance: PREGABALIN
     Indication: PAIN
     Dosage: 100 MG, QD
     Route: 048
     Dates: start: 201412
  4. BUSCOPAN [Concomitant]
     Active Substance: BUTYLSCOPOLAMINE BROMIDE
     Indication: PAIN
     Dosage: 10 MG, TID
     Route: 048
     Dates: start: 20150619
  5. PREDNISONE. [Suspect]
     Active Substance: PREDNISONE
     Indication: PLASMA CELL MYELOMA
     Dosage: 100 MG, UNK
     Route: 048
     Dates: start: 20150427, end: 20150611
  6. VELCADE [Suspect]
     Active Substance: BORTEZOMIB
     Indication: PLASMA CELL MYELOMA
     Dosage: 2.4 MG, UNK
     Route: 058
     Dates: start: 20150427, end: 20150629
  7. HYDROMORPHONE [Concomitant]
     Active Substance: HYDROMORPHONE
     Dosage: 4 MG, BID
     Route: 048
     Dates: start: 20150619

REACTIONS (2)
  - Colitis [Recovered/Resolved]
  - Penetrating aortic ulcer [Recovered/Resolved]

NARRATIVE: CASE EVENT DATE: 20150619
